FAERS Safety Report 7322779-1 (Version None)
Quarter: 2011Q1

REPORT INFORMATION
  Report Type: 
  Country: None (occurrence: None)
  Receive Date: 20110216
  Receipt Date: 20110204
  Transmission Date: 20110831
  Serious: Yes (Hospitalization)
  Sender: FDA-Public Use
  Company Number: 026917

PATIENT
  Age: 5 Year
  Sex: Male

DRUGS (4)
  1. ORFIRIL /00228501/ (ORFIRIL LONG) (NOT SPECIFIED) [Suspect]
  2. ALCOHOL /00002101/ (ANTIFREEZE CAR WIDESCREEN WASHER) [Suspect]
  3. LORAZEPAM [Suspect]
  4. KEPPRA [Suspect]

REACTIONS (5)
  - ABNORMAL BEHAVIOUR [None]
  - TOXICITY TO VARIOUS AGENTS [None]
  - ACCIDENTAL DRUG INTAKE BY CHILD [None]
  - ATAXIA [None]
  - DYSARTHRIA [None]
